FAERS Safety Report 6508096-8 (Version None)
Quarter: 2009Q4

REPORT INFORMATION
  Report Type: 
  Country: None (occurrence: None)
  Receive Date: 20091221
  Receipt Date: 20091217
  Transmission Date: 20100525
  Serious: Yes (Other)
  Sender: FDA-Public Use
  Company Number: US-ABBOTT-09P-163-0614592-00

PATIENT
  Age: 38 Year
  Sex: Male

DRUGS (1)
  1. ADALIMUMAB [Suspect]
     Indication: CROHN'S DISEASE

REACTIONS (3)
  - GRAFT THROMBOSIS [None]
  - RENAL FAILURE [None]
  - SEPSIS [None]
